FAERS Safety Report 4307019-X (Version None)
Quarter: 2004Q1

REPORT INFORMATION
  Report Type: 
  Country: None (occurrence: None)
  Receive Date: 20040225
  Receipt Date: 20040216
  Transmission Date: 20041129
  Serious: Yes (Hospitalization)
  Sender: FDA-Public Use
  Company Number: DEU-2004-0000728

PATIENT
  Age: 42 Year
  Sex: Male

DRUGS (2)
  1. OXYCODONE HCL [Suspect]
     Indication: DRUG USE FOR UNKNOWN INDICATION
     Dosage: SEE IMAGE
     Route: 048
     Dates: start: 20031104
  2. OXYCODONE HCL [Suspect]
     Dosage: 20 MG, BID
     Dates: start: 20031104

REACTIONS (3)
  - ANXIETY [None]
  - MICTURITION URGENCY [None]
  - PANIC ATTACK [None]
